FAERS Safety Report 9372465 (Version 1)
Quarter: 2013Q2

REPORT INFORMATION
  Report Type: Report from Study
  Country: US (occurrence: US)
  Receive Date: 20130627
  Receipt Date: 20130627
  Transmission Date: 20140414
  Serious: Yes (Other)
  Sender: FDA-Public Use
  Company Number: US-MYLANLABS-2012S1025250

PATIENT
  Age: 62 Year
  Sex: Female
  Weight: 90.72 kg

DRUGS (5)
  1. CLOZAPINE TABLETS [Suspect]
     Indication: PSYCHOTIC DISORDER
     Route: 048
     Dates: start: 20120125, end: 20120207
  2. CLOZAPINE TABLETS [Suspect]
     Indication: PSYCHOTIC DISORDER
     Route: 048
     Dates: start: 20120125, end: 20120207
  3. AMLODIPINE [Concomitant]
  4. PROLIXIN /00000602/ [Concomitant]
     Dates: start: 20101206
  5. RISPERDAL [Concomitant]
     Dates: start: 20101210, end: 20120425

REACTIONS (1)
  - Granulocytopenia [Recovered/Resolved]
